FAERS Safety Report 9690803 (Version 2)
Quarter: 2013Q4

REPORT INFORMATION
  Report Type: Spontaneous
  Country: US (occurrence: US)
  Receive Date: 20131115
  Receipt Date: 20131115
  Transmission Date: 20140711
  Serious: Yes (Other)
  Sender: FDA-Public Use
  Company Number: US-AMGEN-USASP2013076729

PATIENT
  Age: 66 Year
  Sex: Female
  Weight: 82.54 kg

DRUGS (5)
  1. PROLIA [Suspect]
     Indication: OSTEOPOROSIS POSTMENOPAUSAL
     Dosage: UNK
     Route: 058
     Dates: start: 201310
  2. LISINOPRIL [Concomitant]
     Indication: RENAL DISORDER
     Dosage: 2.5 UNK, QD
     Route: 048
  3. SERTRALINE [Concomitant]
     Indication: MAJOR DEPRESSION
     Dosage: 25 UNK, QD
     Route: 048
  4. SIMVASTATIN [Concomitant]
     Indication: LIPIDS ABNORMAL
     Dosage: 40UNK, QD
     Route: 048
  5. JANUVIA [Concomitant]
     Indication: TYPE 2 DIABETES MELLITUS
     Dosage: 25 UNK, QD
     Route: 048

REACTIONS (5)
  - Skin lesion [Unknown]
  - Pruritus [Unknown]
  - Skin reaction [Unknown]
  - Rash [Not Recovered/Not Resolved]
  - Urticaria [Unknown]
